FAERS Safety Report 6408622-3 (Version None)
Quarter: 2009Q4

REPORT INFORMATION
  Report Type: 
  Country: None (occurrence: None)
  Receive Date: 20091021
  Receipt Date: 20091021
  Transmission Date: 20100525
  Serious: Yes (Hospitalization)
  Sender: FDA-Public Use
  Company Number: US-PFIZER INC-2009255864

PATIENT
  Sex: Female
  Weight: 54 kg

DRUGS (6)
  1. SOLU-MEDROL [Suspect]
     Indication: MULTIPLE SCLEROSIS
     Dosage: UNK
     Route: 042
     Dates: start: 20060101
  2. SOLU-MEDROL [Suspect]
     Dosage: UNK
     Route: 042
     Dates: start: 20080101, end: 20080101
  3. SOLU-MEDROL [Suspect]
     Dosage: UNK, ONCE
     Route: 042
     Dates: start: 20080704
  4. REBIF [Suspect]
     Indication: MULTIPLE SCLEROSIS
     Dosage: 44 MCG, 3 IN 1 WEEK
     Route: 058
     Dates: start: 20050805, end: 20080801
  5. REBIF [Suspect]
     Dosage: 44 MCG, 3 IN 1 WEEK
     Route: 058
     Dates: start: 20080822
  6. ADDERALL XR 10 [Concomitant]
     Indication: FATIGUE
     Dosage: 25 MG, 1X/DAY

REACTIONS (9)
  - CONSTIPATION [None]
  - DECREASED APPETITE [None]
  - DYSPAREUNIA [None]
  - FAECAL INCONTINENCE [None]
  - FATIGUE [None]
  - HYPERTONIC BLADDER [None]
  - MULTIPLE SCLEROSIS RELAPSE [None]
  - OSTEONECROSIS [None]
  - PERONEAL NERVE PALSY [None]
